FAERS Safety Report 17529293 (Version 1)
Quarter: 2020Q1

REPORT INFORMATION
  Report Type: Report from Study
  Country: US (occurrence: US)
  Receive Date: 20200312
  Receipt Date: 20200312
  Transmission Date: 20200409
  Serious: Yes (Hospitalization)
  Sender: FDA-Public Use
  Company Number: US-BRISTOL-MYERS SQUIBB COMPANY-BMS-2020-015131

PATIENT
  Age: 83 Year
  Sex: Male
  Weight: 87 kg

DRUGS (14)
  1. NIVOLUMAB [Suspect]
     Active Substance: NIVOLUMAB
     Indication: TRANSITIONAL CELL CANCER OF RENAL PELVIS AND URETER METASTATIC
     Dosage: UNK
     Route: 065
     Dates: start: 20191120
  2. VITAMINS NOS [Concomitant]
     Active Substance: VITAMINS
     Indication: ADVERSE EVENT
     Dosage: 1 TAB, QD
     Route: 048
  3. CARBOPLATIN. [Suspect]
     Active Substance: CARBOPLATIN
     Indication: TRANSITIONAL CELL CANCER OF RENAL PELVIS AND URETER METASTATIC
     Dosage: UNK
     Route: 065
     Dates: start: 20191120
  4. CRESTOR [Concomitant]
     Active Substance: ROSUVASTATIN CALCIUM
     Indication: HYPERLIPIDAEMIA
     Dosage: 20 MILLIGRAM, QD
     Route: 048
     Dates: start: 2009
  5. GEMCITABINE HYDROCHLORIDE. [Suspect]
     Active Substance: GEMCITABINE HYDROCHLORIDE
     Indication: TRANSITIONAL CELL CANCER OF RENAL PELVIS AND URETER METASTATIC
     Dosage: UNK
     Route: 065
     Dates: start: 20191120
  6. PRILOSEC [Concomitant]
     Active Substance: OMEPRAZOLE MAGNESIUM
     Indication: GASTROOESOPHAGEAL REFLUX DISEASE
     Dosage: 20 MILLIGRAM, QD
     Route: 048
     Dates: start: 2009
  7. COUMADIN [Concomitant]
     Active Substance: WARFARIN SODIUM
     Indication: ATRIAL FIBRILLATION
     Dosage: 2.5 MILLIGRAM, ON TWTHFSSUN
     Route: 048
     Dates: start: 20200117
  8. METOPROLOL. [Concomitant]
     Active Substance: METOPROLOL
     Indication: ADVERSE EVENT
     Dosage: 50 MILLIGRAM, BID
     Route: 048
  9. XANAX [Concomitant]
     Active Substance: ALPRAZOLAM
     Indication: ANXIETY
     Dosage: 0.5 MILLIGRAM, BEFORE SLEEP
     Route: 048
     Dates: start: 2009
  10. HCTZ [Concomitant]
     Active Substance: HYDROCHLOROTHIAZIDE
     Indication: OEDEMA
     Dosage: 12.5 MILLIGRAM, QD
     Route: 048
     Dates: start: 2014
  11. CLINDAMYCIN. [Concomitant]
     Active Substance: CLINDAMYCIN
     Indication: INFECTION
     Dosage: 300 MILLIGRAM, QD
     Route: 048
     Dates: start: 20200110, end: 20200115
  12. VITAMIN D NOS [Concomitant]
     Active Substance: VITAMIN D NOS
     Indication: ADVERSE EVENT
     Dosage: 2000 UNIT, QD
     Route: 048
     Dates: start: 2009
  13. VITAMIN B12 [Concomitant]
     Active Substance: CYANOCOBALAMIN
     Indication: ADVERSE EVENT
     Dosage: 1000 MICROGRAM, QD
     Route: 048
     Dates: start: 2009
  14. COUMADIN [Concomitant]
     Active Substance: WARFARIN SODIUM
     Indication: PRODUCT USED FOR UNKNOWN INDICATION
     Dosage: 1.25 MILLIGRAM, ON MONDAYS
     Route: 048

REACTIONS (1)
  - Arthritis [Recovered/Resolved with Sequelae]

NARRATIVE: CASE EVENT DATE: 20200217
